FAERS Safety Report 25847196 (Version 1)
Quarter: 2025Q3

REPORT INFORMATION
  Report Type: Spontaneous
  Country: GB (occurrence: GB)
  Receive Date: 20250925
  Receipt Date: 20250925
  Transmission Date: 20251021
  Serious: Yes (Death, Hospitalization)
  Sender: MYLAN
  Company Number: GB-MYLANLABS-2025M1080472

PATIENT
  Age: 8 Decade
  Sex: Male

DRUGS (12)
  1. LOPERAMIDE [Suspect]
     Active Substance: LOPERAMIDE
     Indication: Colitis
  2. LOPERAMIDE [Suspect]
     Active Substance: LOPERAMIDE
  3. LOPERAMIDE [Suspect]
     Active Substance: LOPERAMIDE
     Route: 065
  4. LOPERAMIDE [Suspect]
     Active Substance: LOPERAMIDE
     Route: 065
  5. LOPERAMIDE [Suspect]
     Active Substance: LOPERAMIDE
  6. LOPERAMIDE [Suspect]
     Active Substance: LOPERAMIDE
  7. LOPERAMIDE [Suspect]
     Active Substance: LOPERAMIDE
     Route: 065
  8. LOPERAMIDE [Suspect]
     Active Substance: LOPERAMIDE
     Route: 065
  9. CAPECITABINE [Suspect]
     Active Substance: CAPECITABINE
     Indication: Colon cancer stage II
  10. CAPECITABINE [Suspect]
     Active Substance: CAPECITABINE
     Route: 065
  11. CAPECITABINE [Suspect]
     Active Substance: CAPECITABINE
     Route: 065
  12. CAPECITABINE [Suspect]
     Active Substance: CAPECITABINE

REACTIONS (9)
  - Toxicity to various agents [Fatal]
  - Colitis [Fatal]
  - Rash [Fatal]
  - Dry skin [Fatal]
  - Lip ulceration [Fatal]
  - Abdominal pain [Fatal]
  - Hypophagia [Fatal]
  - Intestinal ischaemia [Fatal]
  - Drug ineffective [Fatal]

NARRATIVE: CASE EVENT DATE: 20220101
